FAERS Safety Report 4480586-1 (Version None)
Quarter: 2004Q4

REPORT INFORMATION
  Report Type: 
  Country: None (occurrence: None)
  Receive Date: 20041019
  Receipt Date: 20041004
  Transmission Date: 20050328
  Serious: Yes (Death, Other)
  Sender: FDA-Public Use
  Company Number: 2004237238GB

PATIENT
  Age: 82 Year
  Sex: Male

DRUGS (9)
  1. CABERGOLINE [Suspect]
     Indication: PARKINSON'S DISEASE
     Dosage: SEE IMAGE
     Route: 048
     Dates: start: 20030227
  2. SINEMET [Concomitant]
  3. NIFEDIPINE [Concomitant]
  4. ASPIRIN [Concomitant]
  5. ENALAPRIL MALEATE [Concomitant]
  6. FRUSEMIDE [Concomitant]
  7. TAMSULOSIN (TAMSULOSIN) [Concomitant]
  8. NITRAZEPAM [Concomitant]
  9. ISMO [Concomitant]

REACTIONS (8)
  - BRONCHOPNEUMONIA [None]
  - CARDIAC FAILURE CONGESTIVE [None]
  - CONDITION AGGRAVATED [None]
  - FLUID RETENTION [None]
  - JOINT SWELLING [None]
  - MYOCARDIAL INFARCTION [None]
  - MYOCARDIAL ISCHAEMIA [None]
  - OEDEMA PERIPHERAL [None]
